FAERS Safety Report 9643898 (Version 1)
Quarter: 2013Q4

REPORT INFORMATION
  Report Type: Spontaneous
  Country: NL (occurrence: None)
  Receive Date: 20131023
  Receipt Date: 20131023
  Transmission Date: 20140711
  Serious: Yes (Death, Other)
  Sender: FDA-Public Use
  Company Number: IPC201310-000409

PATIENT
  Age: 88 Year
  Sex: Female

DRUGS (1)
  1. METOCLOPRAMIDE HYDROCHLORIDE [Suspect]
     Indication: VESTIBULAR NEURONITIS

REACTIONS (4)
  - Parkinsonism [None]
  - Dyskinesia [None]
  - Pneumonia aspiration [None]
  - Treatment noncompliance [None]
